FAERS Safety Report 7141419-8 (Version None)
Quarter: 2010Q4

REPORT INFORMATION
  Report Type: 
  Country: None (occurrence: None)
  Receive Date: 20101207
  Receipt Date: 20101124
  Transmission Date: 20110411
  Serious: Yes (Hospitalization, Other)
  Sender: FDA-Public Use
  Company Number: US-ELI_LILLY_AND_COMPANY-US200909004113

PATIENT
  Sex: Female

DRUGS (11)
  1. FORTEO [Suspect]
     Indication: OSTEOPOROSIS
     Dosage: UNK, UNKNOWN
     Route: 058
     Dates: start: 20090801
  2. FORTEO [Suspect]
     Dosage: UNK, UNKNOWN
     Route: 058
  3. PLAVIX [Concomitant]
  4. SYNTHROID [Concomitant]
  5. METFORMIN [Concomitant]
  6. CITALOPRAM HYDROBROMIDE [Concomitant]
  7. GLIPIZIDE [Concomitant]
  8. ZETIA [Concomitant]
  9. LISINOPRIL [Concomitant]
  10. DILTIAZEM [Concomitant]
  11. TRICOR [Concomitant]

REACTIONS (4)
  - ASTHENIA [None]
  - FALL [None]
  - NASOPHARYNGITIS [None]
  - UPPER LIMB FRACTURE [None]
